FAERS Safety Report 9852706 (Version 2)
Quarter: 2014Q1

REPORT INFORMATION
  Report Type: Spontaneous
  Country: US (occurrence: US)
  Receive Date: 20140129
  Receipt Date: 20140129
  Transmission Date: 20141002
  Serious: Yes (Hospitalization, Other)
  Sender: FDA-Public Use
  Company Number: US-ACORDA-ACO_31370_2012

PATIENT
  Age: 51 Year
  Sex: Male

DRUGS (8)
  1. AMPYRA [Suspect]
     Indication: PRODUCT USED FOR UNKNOWN INDICATION
     Dosage: UNK
     Dates: start: 201108, end: 2011
  2. AMPYRA [Suspect]
     Dosage: UNK
     Dates: start: 201204
  3. COPAXONE [Concomitant]
     Indication: MULTIPLE SCLEROSIS
     Dosage: UNK, QD INJECTION
     Route: 065
     Dates: start: 20100410
  4. LEXAPRO [Concomitant]
     Indication: PRODUCT USED FOR UNKNOWN INDICATION
     Dosage: 20 MG, QD
  5. OXYBUTYNIN [Concomitant]
     Indication: PRODUCT USED FOR UNKNOWN INDICATION
     Dosage: 10 MG, QD
  6. FOSAMAX [Concomitant]
     Indication: PRODUCT USED FOR UNKNOWN INDICATION
  7. MULTIVITAMIN                       /00831701/ [Concomitant]
     Indication: PRODUCT USED FOR UNKNOWN INDICATION
  8. SOLUMEDROL [Concomitant]
     Indication: PRODUCT USED FOR UNKNOWN INDICATION
     Dosage: UNK, MONTHLY
     Route: 042

REACTIONS (3)
  - Convulsion [Unknown]
  - Convulsion [Recovered/Resolved]
  - Urinary tract infection [Unknown]
